FAERS Safety Report 21363667 (Version 1)
Quarter: 2022Q3

REPORT INFORMATION
  Report Type: Spontaneous
  Country: US (occurrence: US)
  Receive Date: 20220922
  Receipt Date: 20220922
  Transmission Date: 20221027
  Serious: Yes (Other)
  Sender: FDA-Public Use
  Company Number: US-UCBSA-2022055507

PATIENT
  Age: 17 Year
  Sex: Female

DRUGS (1)
  1. NAYZILAM [Suspect]
     Active Substance: MIDAZOLAM
     Indication: Product used for unknown indication
     Dosage: 1 NASAL SPRAY AS NEEDED (50MG/ML STRENGTH)
     Dates: start: 20210915

REACTIONS (2)
  - Seizure [Recovered/Resolved]
  - Cerebral cyst [Unknown]

NARRATIVE: CASE EVENT DATE: 20220501
